FAERS Safety Report 6379256-4 (Version None)
Quarter: 2009Q3

REPORT INFORMATION
  Report Type: 
  Country: None (occurrence: None)
  Receive Date: 20090923
  Receipt Date: 20090923
  Transmission Date: 20100115
  Serious: Yes (Hospitalization)
  Sender: FDA-Public Use
  Company Number: None

PATIENT
  Age: 45 Year
  Sex: Male
  Weight: 113 kg

DRUGS (16)
  1. FLECAINIDE ACETATE [Suspect]
     Indication: ATRIAL FIBRILLATION
     Dosage: 150MG PO BID
     Route: 048
     Dates: start: 20090609, end: 20090614
  2. ALLOPURINOL [Concomitant]
  3. ALPRAZOLAM [Concomitant]
  4. ASPIRIN [Concomitant]
  5. CACO3, [Concomitant]
  6. COLCHICINE [Concomitant]
  7. ENALAPRIL MALEATE [Concomitant]
  8. LIPITOR [Concomitant]
  9. MGO [Concomitant]
  10. MULTI-VITAMIN [Concomitant]
  11. MYCOPHENOLATE MOFETIL [Concomitant]
  12. NEXIUM [Concomitant]
  13. PREDNISONE [Concomitant]
  14. TACROLIMUS [Concomitant]
  15. TOPROL-XL [Concomitant]
  16. COUMADIN [Concomitant]

REACTIONS (2)
  - SINUS BRADYCARDIA [None]
  - SYNCOPE [None]
